FAERS Safety Report 8052400-9 (Version None)
Quarter: 2012Q1

REPORT INFORMATION
  Report Type: 
  Country: None (occurrence: None)
  Receive Date: 20120118
  Receipt Date: 20120104
  Transmission Date: 20120608
  Serious: Yes (Other)
  Sender: FDA-Public Use
  Company Number: US-PFIZER INC-2012002772

PATIENT
  Sex: Female
  Weight: 108.8 kg

DRUGS (22)
  1. LYRICA [Suspect]
     Indication: DIABETIC NEUROPATHY
     Dosage: 75 MG, 2X/DAY
     Route: 048
     Dates: start: 20080101
  2. VALIUM [Concomitant]
     Dosage: UNK
  3. GLUCOTROL XL [Concomitant]
     Indication: TYPE 2 DIABETES MELLITUS
     Dosage: 20 MG, 2X/DAY
  4. LYRICA [Suspect]
     Indication: PAIN
  5. LISINOPRIL [Concomitant]
     Indication: HYPERTENSION
     Dosage: 10 MG
  6. ALLOPURINOL [Concomitant]
     Indication: NEPHROLITHIASIS
     Dosage: 150 MG
  7. RESTASIS [Concomitant]
     Indication: DRY EYE
     Dosage: UNK
  8. PERCOCET [Concomitant]
     Indication: BACK PAIN
     Dosage: UNK
  9. PLAVIX [Concomitant]
     Indication: ANTICOAGULANT THERAPY
  10. ATENOLOL [Concomitant]
     Dosage: 50 MG IN THE MORNING, 20 MG AT NIGHT
  11. PLAVIX [Concomitant]
     Indication: CORONARY ARTERY DISEASE
     Dosage: 75 MG, 1X/DAY
  12. PREVACID [Concomitant]
     Indication: GASTRIC ULCER
     Dosage: UNK
  13. LIPITOR [Concomitant]
     Dosage: UNK
  14. SYNTHROID [Concomitant]
     Indication: HYPERTHYROIDISM
     Dosage: 175 UG, 1X/DAY
  15. DURAGESIC-100 [Concomitant]
     Indication: DIABETIC NEUROPATHY
     Dosage: 50 MCG PATCH ONE EVERY 72 HOURS
  16. DURAGESIC-100 [Concomitant]
     Indication: ARTHRITIS
  17. DETROL [Concomitant]
     Indication: HYPERTONIC BLADDER
     Dosage: 2 MG, 2X/DAY
  18. NEURONTIN [Suspect]
     Indication: DIABETIC NEUROPATHY
     Dosage: 2X/DAY
     Route: 048
     Dates: start: 20080101, end: 20080101
  19. NEURONTIN [Suspect]
     Indication: PAIN
  20. CYMBALTA [Concomitant]
     Dosage: UNK, 2X/DAY
  21. XANAX [Concomitant]
     Indication: ANXIETY
     Dosage: 0.25 MG
  22. ISOSORBIDE [Concomitant]
     Dosage: 30 MG, 1X/DAY

REACTIONS (1)
  - DYSKINESIA [None]
